FAERS Safety Report 17018106 (Version 8)
Quarter: 2020Q2

REPORT INFORMATION
  Report Type: Report from Study
  Country: US (occurrence: US)
  Receive Date: 20191111
  Receipt Date: 20200610
  Transmission Date: 20200713
  Serious: Yes (Hospitalization, Other)
  Sender: FDA-Public Use
  Company Number: US-ACTELION-A-NJ2018-181934

PATIENT
  Age: 47 Year
  Sex: Female

DRUGS (17)
  1. REMODULIN [Suspect]
     Active Substance: TREPROSTINIL
     Indication: PULMONARY HYPERTENSION
     Dosage: 50 NG/KG, PER MIN
     Route: 058
     Dates: start: 20191008
  2. IRON SUCROSE [Concomitant]
     Active Substance: IRON SUCROSE
  3. OPSUMIT [Suspect]
     Active Substance: MACITENTAN
     Indication: PULMONARY ARTERIAL HYPERTENSION
     Dosage: 10 MG, QD
     Route: 048
     Dates: start: 20181030
  4. SILDENAFIL. [Concomitant]
     Active Substance: SILDENAFIL
     Indication: PULMONARY HYPERTENSION
     Dosage: 20 MG, TID
     Route: 048
     Dates: start: 20181011
  5. ZOFRAN [Concomitant]
     Active Substance: ONDANSETRON HYDROCHLORIDE
     Dosage: UNK
     Dates: start: 2019
  6. RIFAXIMIN. [Concomitant]
     Active Substance: RIFAXIMIN
     Indication: HEPATIC ENCEPHALOPATHY
     Dosage: 550 MG, BID
     Route: 048
     Dates: start: 20191027, end: 20191101
  7. MAGNESIUM [Concomitant]
     Active Substance: MAGNESIUM
     Dosage: UNK
     Dates: start: 20200329
  8. VANCOMYCIN [Concomitant]
     Active Substance: VANCOMYCIN
     Dosage: UNK
     Dates: start: 20200329
  9. SUMATRIPTAN. [Concomitant]
     Active Substance: SUMATRIPTAN
     Dosage: UNK
     Dates: start: 20190405
  10. AFRIN [Concomitant]
     Active Substance: OXYMETAZOLINE
     Dosage: UNK
     Dates: start: 20181030
  11. PROTONIX [Concomitant]
     Active Substance: PANTOPRAZOLE SODIUM
     Indication: GASTROOESOPHAGEAL REFLUX DISEASE
     Dosage: 40 MG
     Route: 042
     Dates: start: 20190911
  12. LACTULOSE. [Suspect]
     Active Substance: LACTULOSE
     Indication: HEPATIC ENCEPHALOPATHY
     Dosage: 30 ML, PRN
     Route: 048
     Dates: start: 20191015, end: 20191111
  13. SPIRONOLACTONE. [Concomitant]
     Active Substance: SPIRONOLACTONE
     Indication: PULMONARY HYPERTENSION
     Dosage: 50 MG, QD
     Route: 048
     Dates: start: 20191008
  14. ORENITRAM [Concomitant]
     Active Substance: TREPROSTINIL
     Dosage: 0.5 IN AM, 0.375 MG IN AFTERNOON, 0.375 MG AT DINNER, AND 0.5 MG AT BEDTIME
  15. FUROSEMIDE. [Concomitant]
     Active Substance: FUROSEMIDE
     Indication: PULMONARY HYPERTENSION
     Dosage: 20 MG
     Route: 042
     Dates: start: 20191007
  16. CYANOCOBALAMIN. [Concomitant]
     Active Substance: CYANOCOBALAMIN
     Dosage: UNK
     Dates: start: 20200329
  17. ZOSYN [Concomitant]
     Active Substance: PIPERACILLIN SODIUM\TAZOBACTAM SODIUM
     Dosage: UNK
     Dates: start: 20200329

REACTIONS (36)
  - Oedema [Unknown]
  - Ascites [Recovered/Resolved]
  - Weight decreased [Recovering/Resolving]
  - Confusional state [Recovered/Resolved]
  - Melaena [Recovered/Resolved]
  - Abdominal pain [Recovered/Resolved]
  - Nasal congestion [Not Recovered/Not Resolved]
  - Muscle spasms [Not Recovered/Not Resolved]
  - Diarrhoea [Not Recovered/Not Resolved]
  - Haemangioma [Unknown]
  - Abdominal pain lower [Unknown]
  - Blood bilirubin increased [Recovered/Resolved]
  - Pulmonary hypertension [Recovered/Resolved]
  - Pneumonia [Recovered/Resolved]
  - Pain [Unknown]
  - Prothrombin time prolonged [Unknown]
  - N-terminal prohormone brain natriuretic peptide increased [Recovered/Resolved]
  - Malaise [Recovering/Resolving]
  - Lethargy [Not Recovered/Not Resolved]
  - Decreased appetite [Unknown]
  - Product dose omission [Unknown]
  - Mental status changes [Recovered/Resolved]
  - Nasopharyngitis [Not Recovered/Not Resolved]
  - Respiration abnormal [Unknown]
  - Oedema peripheral [Recovered/Resolved]
  - Oxygen saturation decreased [Recovering/Resolving]
  - Lower respiratory tract infection [Not Recovered/Not Resolved]
  - Pleural effusion [Recovered/Resolved]
  - Liver disorder [Not Recovered/Not Resolved]
  - Pain in extremity [Unknown]
  - Headache [Not Recovered/Not Resolved]
  - Dyspnoea [Recovering/Resolving]
  - Vomiting [Unknown]
  - Nausea [Unknown]
  - Hepatic lesion [Unknown]
  - International normalised ratio increased [Unknown]

NARRATIVE: CASE EVENT DATE: 20181030
